FAERS Safety Report 25989673 (Version 1)
Quarter: 2025Q4

REPORT INFORMATION
  Report Type: Spontaneous
  Country: US (occurrence: US)
  Receive Date: 20251103
  Receipt Date: 20251103
  Transmission Date: 20260119
  Serious: No
  Sender: TAKEDA
  Company Number: US-TAKEDA-2025TUS092565

PATIENT
  Age: 62 Year

DRUGS (2)
  1. ENTYVIO PEN [Suspect]
     Active Substance: VEDOLIZUMAB
     Indication: Product used for unknown indication
     Dosage: UNK
  2. ENTYVIO PEN [Suspect]
     Active Substance: VEDOLIZUMAB

REACTIONS (3)
  - No adverse event [Unknown]
  - Product dose omission issue [Unknown]
  - Inappropriate schedule of product administration [Unknown]
